FAERS Safety Report 8900250 (Version 1)
Quarter: 2012Q4

REPORT INFORMATION
  Report Type: Report from Study
  Country: CA (occurrence: CA)
  Receive Date: 20121109
  Receipt Date: 20121109
  Transmission Date: 20130627
  Serious: Yes (Hospitalization)
  Sender: FDA-Public Use
  Company Number: CA-JNJFOC-20121015112

PATIENT
  Age: 29 None
  Sex: Male
  Weight: 94.8 kg

DRUGS (1)
  1. REMICADE [Suspect]
     Indication: COLITIS ULCERATIVE
     Route: 042
     Dates: start: 201210

REACTIONS (2)
  - Pyrexia [Unknown]
  - Hospitalisation [Unknown]
